FAERS Safety Report 7348244-3 (Version None)
Quarter: 2011Q1

REPORT INFORMATION
  Report Type: 
  Country: None (occurrence: None)
  Receive Date: 20110222
  Receipt Date: 20100204
  Transmission Date: 20110831
  Serious: Yes (Hospitalization)
  Sender: FDA-Public Use
  Company Number: 2010022028

PATIENT
  Sex: Female
  Weight: 45.3597 kg

DRUGS (1)
  1. VIVAGLOBIN [Suspect]
     Indication: SELECTIVE POLYSACCHARIDE ANTIBODY DEFICIENCY
     Dosage: 30 OR 40 ML ONCE WEEKLY IN 3 SITES OVER 2 HOURS, SUBCUTANEOUS
     Route: 058
     Dates: start: 20100203

REACTIONS (4)
  - INFUSION SITE RASH [None]
  - PYREXIA [None]
  - CHILLS [None]
  - NECK PAIN [None]
